FAERS Safety Report 6313517-X (Version None)
Quarter: 2009Q3

REPORT INFORMATION
  Report Type: 
  Country: None (occurrence: None)
  Receive Date: 20090818
  Receipt Date: 20090805
  Transmission Date: 20100115
  Serious: Yes (Hospitalization)
  Sender: FDA-Public Use
  Company Number: KW-ELI_LILLY_AND_COMPANY-KW200908001732

PATIENT
  Sex: Female
  Weight: 75 kg

DRUGS (4)
  1. BYETTA [Suspect]
     Dosage: 5 UG, 2/D
     Route: 058
     Dates: start: 20090501, end: 20090501
  2. BYETTA [Suspect]
     Dosage: 5 UG, 2/D
     Route: 058
     Dates: start: 20090101
  3. METFORMIN HCL [Concomitant]
     Dosage: 850 MG, 2/D
     Route: 048
  4. INSULIN PROTAPHANE /00646002/ [Concomitant]
     Dosage: 10 U, EACH EVENING
     Route: 065

REACTIONS (3)
  - CONFUSIONAL STATE [None]
  - NAUSEA [None]
  - VOMITING [None]
